FAERS Safety Report 16297546 (Version 1)
Quarter: 2019Q2

REPORT INFORMATION
  Report Type: Other
  Country: US (occurrence: US)
  Receive Date: 20190510
  Receipt Date: 20190510
  Transmission Date: 20190711
  Serious: Yes (Death, Hospitalization, Other)
  Sender: FDA-Public Use
  Company Number: US-VERASTEM-2019-00067

PATIENT

DRUGS (1)
  1. COPIKTRA [Suspect]
     Active Substance: DUVELISIB
     Indication: B-CELL LYMPHOMA
     Dosage: 25 MG, BID
     Route: 048
     Dates: start: 20190302, end: 20190329

REACTIONS (5)
  - Pancytopenia [Recovering/Resolving]
  - Death [Fatal]
  - Ileus [Not Recovered/Not Resolved]
  - Cognitive disorder [Not Recovered/Not Resolved]
  - Colitis [Recovered/Resolved with Sequelae]

NARRATIVE: CASE EVENT DATE: 201903
